FAERS Safety Report 9067522 (Version 1)
Quarter: 2013Q1

REPORT INFORMATION
  Report Type: Report from Study
  Country: US (occurrence: US)
  Receive Date: 20130131
  Receipt Date: 20130131
  Transmission Date: 20140127
  Serious: No
  Sender: FDA-Public Use
  Company Number: US-ABBOTT-12P-163-1007837-00

PATIENT
  Age: 53 Year
  Sex: Female

DRUGS (16)
  1. HUMIRA [Suspect]
     Indication: COLITIS ULCERATIVE
     Route: 058
     Dates: start: 20121023, end: 20121023
  2. HUMIRA [Suspect]
     Route: 058
     Dates: start: 20121106, end: 20121106
  3. HUMIRA [Suspect]
     Route: 058
  4. IMURAN [Concomitant]
     Indication: COLITIS ULCERATIVE
     Dosage: 200MG DAILY
  5. K-DUR POTASSIUM [Concomitant]
     Indication: PRODUCT USED FOR UNKNOWN INDICATION
  6. ISOSORBIDE MONONITRATE [Concomitant]
     Indication: CARDIOVASCULAR DISORDER
     Dosage: 30MG DAILY
  7. LASIX [Concomitant]
     Indication: CARDIOVASCULAR DISORDER
  8. LEXAPRO [Concomitant]
     Indication: DEPRESSION
     Dosage: 10MG DAILY
  9. ZOLOFT [Concomitant]
     Indication: DEPRESSION
     Dosage: 100MG DAILY
  10. FLEXERIL [Concomitant]
     Indication: PRODUCT USED FOR UNKNOWN INDICATION
  11. NEURONTIN [Concomitant]
     Indication: PRODUCT USED FOR UNKNOWN INDICATION
  12. LORTAB [Concomitant]
     Indication: SPINAL OPERATION
     Dosage: 10MG/500MG
  13. LORTAB [Concomitant]
     Indication: ORTHOPAEDIC PROCEDURE
  14. LORTAB [Concomitant]
     Indication: NEUROLOGICAL SYMPTOM
  15. COLAZAL [Concomitant]
     Indication: IRRITABLE BOWEL SYNDROME
     Dosage: 750MG
  16. NEXIUM [Concomitant]
     Indication: GASTROOESOPHAGEAL REFLUX DISEASE
     Dosage: 40MG DAILY

REACTIONS (4)
  - Chest discomfort [Recovering/Resolving]
  - Cough [Recovering/Resolving]
  - Dyspnoea [Recovering/Resolving]
  - Chest discomfort [Recovering/Resolving]
